FAERS Safety Report 13662870 (Version 1)
Quarter: 2017Q2

REPORT INFORMATION
  Report Type: Spontaneous
  Country: US (occurrence: US)
  Receive Date: 20170616
  Receipt Date: 20170616
  Transmission Date: 20170830
  Serious: Yes (Hospitalization, Disabling)
  Sender: FDA-Public Use
  Company Number: None

PATIENT
  Age: 38 Year
  Sex: Female
  Weight: 80.55 kg

DRUGS (7)
  1. DELTASONE [Suspect]
     Active Substance: PREDNISONE
     Indication: SINUSITIS
     Dosage: ?          QUANTITY:5 TABLET(S);?
     Route: 048
     Dates: start: 20170407, end: 20170409
  2. MULTIVITAMIN [Concomitant]
     Active Substance: VITAMINS
  3. COQ10 [Concomitant]
     Active Substance: UBIDECARENONE
  4. CLARITIN [Concomitant]
     Active Substance: LORATADINE
  5. ZANTAC [Concomitant]
     Active Substance: RANITIDINE HYDROCHLORIDE
  6. LEVAQUIN [Suspect]
     Active Substance: LEVOFLOXACIN
     Indication: SINUSITIS
     Dosage: ?          QUANTITY:10 TABLET(S);?
     Route: 048
     Dates: start: 20170407, end: 20170410
  7. MAGNESIUM [Concomitant]
     Active Substance: MAGNESIUM

REACTIONS (10)
  - Dyspnoea [None]
  - Electrocardiogram T wave inversion [None]
  - Chest pain [None]
  - Depressed level of consciousness [None]
  - Disturbance in attention [None]
  - Fatigue [None]
  - Discomfort [None]
  - Lymphadenopathy [None]
  - Paraesthesia [None]
  - Impaired work ability [None]

NARRATIVE: CASE EVENT DATE: 20170411
